FAERS Safety Report 10911171 (Version 1)
Quarter: 2015Q1

REPORT INFORMATION
  Report Type: Report from Study
  Country: US (occurrence: US)
  Receive Date: 20150312
  Receipt Date: 20150312
  Transmission Date: 20150721
  Serious: Yes (Hospitalization)
  Sender: FDA-Public Use
  Company Number: US-B.I. PHARMACEUTICALS,INC./RIDGEFIELD-2015-BI-12537BI

PATIENT
  Age: 92 Year
  Sex: Female

DRUGS (5)
  1. VALSARTAN SANDOZ [Concomitant]
     Active Substance: VALSARTAN
     Indication: BLOOD PRESSURE ABNORMAL
     Dosage: 80 MG
     Route: 048
     Dates: start: 20130608
  2. APOTEX APO-K [Concomitant]
     Indication: HYPOKALAEMIA
     Dosage: 600 MG
     Route: 048
     Dates: start: 20131120
  3. PANTOPRAZOLE SODIUM SANDOZ [Concomitant]
     Indication: HYPERCHLORHYDRIA
     Dosage: 40 MG
     Route: 048
     Dates: start: 20130809
  4. PRADAXA [Suspect]
     Active Substance: DABIGATRAN ETEXILATE MESYLATE
     Indication: ATRIAL FIBRILLATION
     Dosage: 220 MG
     Route: 048
     Dates: start: 20130603
  5. METOPROLOL TARTRATE. [Concomitant]
     Active Substance: METOPROLOL TARTRATE
     Indication: ATRIAL FIBRILLATION
     Dosage: DOSE PER APPLICATION AND DAILY DOSE: 25 MG 1/4 TAB BID
     Route: 048
     Dates: start: 20130809

REACTIONS (2)
  - Vomiting [Recovered/Resolved]
  - Haemoptysis [Recovered/Resolved]

NARRATIVE: CASE EVENT DATE: 20140413
